FAERS Safety Report 6924544-3 (Version None)
Quarter: 2010Q3

REPORT INFORMATION
  Report Type: 
  Country: None (occurrence: None)
  Receive Date: 20100816
  Receipt Date: 20100806
  Transmission Date: 20110219
  Serious: No
  Sender: FDA-Public Use
  Company Number: 2009BI024075

PATIENT
  Age: 59 Year
  Sex: Female

DRUGS (2)
  1. TYSABRI [Suspect]
     Indication: MULTIPLE SCLEROSIS
     Route: 042
     Dates: start: 20090721
  2. AVONEX [Concomitant]
     Indication: MULTIPLE SCLEROSIS
     Route: 030

REACTIONS (7)
  - ASTHENIA [None]
  - BALANCE DISORDER [None]
  - BLADDER DISORDER [None]
  - FALL [None]
  - FATIGUE [None]
  - MUSCLE SPASTICITY [None]
  - MUSCULAR WEAKNESS [None]
